FAERS Safety Report 14497175 (Version 3)
Quarter: 2018Q2

REPORT INFORMATION
  Report Type: Report from Study
  Country: CA (occurrence: CA)
  Receive Date: 20180207
  Receipt Date: 20180514
  Transmission Date: 20180711
  Serious: Yes (Other)
  Sender: FDA-Public Use
  Company Number: CA-BRISTOL-MYERS SQUIBB COMPANY-BMS-2017-089211

PATIENT
  Sex: Female

DRUGS (1)
  1. ABATACEPT [Suspect]
     Active Substance: ABATACEPT
     Indication: RHEUMATOID ARTHRITIS
     Dosage: 125 MG, QWK
     Route: 058
     Dates: start: 20171002, end: 20180501

REACTIONS (13)
  - Arthralgia [Recovering/Resolving]
  - Skin discolouration [Unknown]
  - Peripheral swelling [Recovering/Resolving]
  - Loss of personal independence in daily activities [Unknown]
  - Heart rate decreased [Unknown]
  - Malaise [Unknown]
  - Musculoskeletal pain [Recovering/Resolving]
  - Skin disorder [Unknown]
  - Movement disorder [Unknown]
  - Drug ineffective [Unknown]
  - Joint swelling [Recovering/Resolving]
  - Oedema peripheral [Recovering/Resolving]
  - Fatigue [Unknown]
